FAERS Safety Report 5206461-2 (Version None)
Quarter: 2007Q1

REPORT INFORMATION
  Report Type: 
  Country: None (occurrence: None)
  Receive Date: 20070109
  Receipt Date: 20061227
  Transmission Date: 20070707
  Serious: Yes (Hospitalization, Other)
  Sender: FDA-Public Use
  Company Number: 2006BI017494

PATIENT
  Age: 31 Year
  Sex: Female

DRUGS (7)
  1. NATALIZUMAB [Suspect]
     Indication: MULTIPLE SCLEROSIS
     Dosage: IV
     Route: 042
     Dates: start: 20060918, end: 20061113
  2. GREEN TEA [Concomitant]
  3. FLAX OIL [Concomitant]
  4. CALCIUM [Concomitant]
  5. GARLIC [Concomitant]
  6. MULTI-VITAMIN [Concomitant]
  7. VALTREX [Concomitant]

REACTIONS (18)
  - ASTHENIA [None]
  - BLOOD POTASSIUM DECREASED [None]
  - CONDITION AGGRAVATED [None]
  - CONTUSION [None]
  - DEPRESSION [None]
  - DYSPNOEA [None]
  - FATIGUE [None]
  - GASTROOESOPHAGEAL REFLUX DISEASE [None]
  - HAEMATEMESIS [None]
  - HAEMORRHAGE [None]
  - INFLUENZA [None]
  - MIGRAINE [None]
  - MULTIPLE SCLEROSIS [None]
  - NAUSEA [None]
  - TREATMENT NONCOMPLIANCE [None]
  - VOMITING [None]
  - WEIGHT DECREASED [None]
  - WHITE BLOOD CELL COUNT DECREASED [None]
